FAERS Safety Report 4364184-6 (Version None)
Quarter: 2004Q2

REPORT INFORMATION
  Report Type: 
  Country: None (occurrence: None)
  Receive Date: 20040521
  Receipt Date: 20040212
  Transmission Date: 20050107
  Serious: Yes (Hospitalization)
  Sender: FDA-Public Use
  Company Number: F01200400258

PATIENT
  Age: 82 Year
  Sex: Female

DRUGS (8)
  1. OXALIPLATIN - SOLUTION - 224 MG [Suspect]
     Indication: COLON CANCER
     Dosage: 224 MG Q3W INTRAVENOUS NOS
     Route: 042
     Dates: start: 20040106, end: 20040106
  2. CAPECITABINE - TABLET - 3300 MG [Suspect]
     Dosage: 3300 MG A DAY PER ORAL FROM D1 TO D15 ORAL
     Route: 048
     Dates: start: 20040106
  3. TOPROL-XL [Concomitant]
  4. ATACAND [Concomitant]
  5. ZOCOR [Concomitant]
  6. PREMARIN [Concomitant]
  7. ALLEGRA [Concomitant]
  8. NIZATIDINE [Concomitant]

REACTIONS (5)
  - BLOOD POTASSIUM DECREASED [None]
  - COLITIS [None]
  - DEHYDRATION [None]
  - ILEITIS [None]
  - VOMITING [None]
